FAERS Safety Report 17716586 (Version 5)
Quarter: 2022Q3

REPORT INFORMATION
  Report Type: Spontaneous
  Country: JP (occurrence: JP)
  Receive Date: 20200428
  Receipt Date: 20220713
  Transmission Date: 20221027
  Serious: Yes (Death, Other)
  Sender: FDA-Public Use
  Company Number: JP-GLAXOSMITHKLINE-JP2020JPN070179

PATIENT

DRUGS (20)
  1. ATOVAQUONE [Suspect]
     Active Substance: ATOVAQUONE
     Indication: Infection prophylaxis
     Dosage: UNK
     Route: 048
     Dates: start: 20191218, end: 20191230
  2. SULFAMETHOXAZOLE\TRIMETHOPRIM [Concomitant]
     Active Substance: SULFAMETHOXAZOLE\TRIMETHOPRIM
     Indication: Prophylaxis
     Dosage: UNK
  3. CARBOCYSTEINE [Concomitant]
     Active Substance: CARBOCYSTEINE
     Dosage: UNK
     Dates: start: 20190628, end: 20191231
  4. DIQUAS OPHTHALMIC [Concomitant]
     Dosage: UNK
     Dates: start: 20190808
  5. PREDONINE [Concomitant]
     Active Substance: PREDNISOLONE
     Dosage: UNK
     Dates: start: 20191113, end: 20191231
  6. LANSOPRAZOLE-OD TABLETS [Concomitant]
     Dosage: UNK
     Dates: start: 20191113, end: 20191231
  7. DIFLUPREDNATE [Concomitant]
     Active Substance: DIFLUPREDNATE
     Dosage: UNK
     Dates: start: 20191113
  8. AZUNOL OINTMENT [Concomitant]
     Dosage: UNK
     Dates: start: 20191113
  9. BONALON ORAL JELLY [Concomitant]
     Dosage: UNK
     Dates: start: 20191122, end: 20191231
  10. SODIUM GUALENATE MONOHYDRATE [Concomitant]
     Active Substance: SODIUM GUALENATE MONOHYDRATE
     Dosage: UNK
     Dates: start: 20191125
  11. XYLOCAINE [Concomitant]
     Active Substance: LIDOCAINE HYDROCHLORIDE
     Dosage: UNK
     Dates: start: 20191125
  12. POSTERISAN FORTE OINTMENT (E. COLI + HYDROCORTISONE) [Concomitant]
     Dosage: UNK
     Dates: start: 20191129
  13. MAGNESIUM OXIDE [Concomitant]
     Active Substance: MAGNESIUM OXIDE
     Dosage: UNK
     Dates: start: 20191202, end: 20191231
  14. HALIZON SYRUP [Concomitant]
     Dosage: UNK
     Dates: start: 20191204, end: 20191231
  15. IMURAN [Concomitant]
     Active Substance: AZATHIOPRINE
     Dosage: UNK
     Dates: start: 20191225, end: 20191231
  16. ZOSYN INJECTION [Concomitant]
     Dosage: UNK
     Dates: start: 20191230, end: 20200101
  17. ZOSYN INJECTION [Concomitant]
     Dosage: UNK
     Dates: start: 20200106
  18. PREDNISOLONE SODIUM SUCCINATE [Concomitant]
     Active Substance: PREDNISOLONE SODIUM SUCCINATE
     Dosage: UNK
     Dates: start: 20191231
  19. OMEPRAZOLE INJECTION [Concomitant]
     Dosage: UNK
     Dates: start: 20191231
  20. ACETAMINOPHEN [Concomitant]
     Active Substance: ACETAMINOPHEN
     Dosage: UNK
     Dates: start: 20191231

REACTIONS (21)
  - Toxic epidermal necrolysis [Fatal]
  - Multiple organ dysfunction syndrome [Fatal]
  - Mouth ulceration [Not Recovered/Not Resolved]
  - Skin ulcer [Recovering/Resolving]
  - Pain [Unknown]
  - General physical health deterioration [Unknown]
  - Acquired epidermolysis bullosa [Unknown]
  - Condition aggravated [Unknown]
  - Mucocutaneous disorder [Unknown]
  - Cutaneous symptom [Recovering/Resolving]
  - Oral mucosa erosion [Unknown]
  - Eye discharge [Not Recovered/Not Resolved]
  - Conjunctival hyperaemia [Unknown]
  - Pyrexia [Unknown]
  - Skin bacterial infection [Unknown]
  - Lip erosion [Unknown]
  - Erythema [Recovering/Resolving]
  - Nikolsky^s sign [Recovering/Resolving]
  - Skin exfoliation [Unknown]
  - Effusion [Recovering/Resolving]
  - Skin odour abnormal [Recovering/Resolving]

NARRATIVE: CASE EVENT DATE: 20190101
